FAERS Safety Report 5745587-1 (Version None)
Quarter: 2008Q2

REPORT INFORMATION
  Report Type: 
  Country: None (occurrence: None)
  Receive Date: 20080521
  Receipt Date: 20080513
  Transmission Date: 20081010
  Serious: Yes (Hospitalization)
  Sender: FDA-Public Use
  Company Number: FR-PFIZER INC-2008041648

PATIENT
  Sex: Male

DRUGS (4)
  1. TAHOR [Suspect]
     Route: 048
  2. HEPARIN [Suspect]
     Indication: PULMONARY EMBOLISM
     Dosage: TEXT:12500IU/0.5 ML
     Route: 058
     Dates: start: 20080204, end: 20080210
  3. COUMADIN [Suspect]
     Indication: PULMONARY EMBOLISM
     Route: 048
     Dates: start: 20080206, end: 20080207
  4. INNOHEP [Suspect]
     Indication: PULMONARY EMBOLISM
     Dosage: DAILY DOSE:.5ML
     Dates: start: 20080221, end: 20080221

REACTIONS (1)
  - HAEMATOMA [None]
